FAERS Safety Report 9962958 (Version 1)
Quarter: 2014Q1

REPORT INFORMATION
  Report Type: Spontaneous
  Country: FR (occurrence: FR)
  Receive Date: 20140305
  Receipt Date: 20140305
  Transmission Date: 20141002
  Serious: Yes (Disabling)
  Sender: FDA-Public Use
  Company Number: FR-PFIZER INC-2014059471

PATIENT
  Age: 60 Year
  Sex: Male

DRUGS (2)
  1. XALATAN [Suspect]
     Indication: GLAUCOMA
     Dosage: UNK
     Route: 047
     Dates: start: 2002, end: 20131230
  2. NISISCO [Concomitant]
     Indication: HYPERTENSION
     Dosage: 80MG/12.5MG

REACTIONS (1)
  - Peyronie^s disease [Not Recovered/Not Resolved]
